FAERS Safety Report 20358524 (Version 1)
Quarter: 2022Q1

REPORT INFORMATION
  Report Type: Spontaneous
  Country: US (occurrence: US)
  Receive Date: 20220120
  Receipt Date: 20220120
  Transmission Date: 20220424
  Serious: No
  Sender: FDA-Public Use
  Company Number: US-NOVOPROD-882379

PATIENT
  Age: 76 Year
  Sex: Female

DRUGS (1)
  1. OZEMPIC [Suspect]
     Active Substance: SEMAGLUTIDE
     Indication: Product used for unknown indication
     Dosage: 1 MG, QW
     Route: 058
     Dates: start: 202003, end: 20211114

REACTIONS (5)
  - Tongue blistering [Not Recovered/Not Resolved]
  - Glossodynia [Recovered/Resolved]
  - Noninfective gingivitis [Unknown]
  - Vision blurred [Unknown]
  - Oral pain [Unknown]

NARRATIVE: CASE EVENT DATE: 20210501
